FAERS Safety Report 7283987-1 (Version None)
Quarter: 2011Q1

REPORT INFORMATION
  Report Type: 
  Country: None (occurrence: None)
  Receive Date: 20110209
  Receipt Date: 20110131
  Transmission Date: 20110831
  Serious: Yes (Other)
  Sender: FDA-Public Use
  Company Number: US-CEPHALON-2011000230

PATIENT
  Sex: Female

DRUGS (2)
  1. NUVIGIL [Suspect]
     Indication: SLEEP APNOEA SYNDROME
     Route: 048
     Dates: start: 20091201
  2. PROVIGIL [Suspect]
     Route: 048
     Dates: start: 20091101

REACTIONS (8)
  - DRY MOUTH [None]
  - TONGUE DISORDER [None]
  - OROPHARYNGEAL BLISTERING [None]
  - TONGUE DRY [None]
  - STOMATITIS [None]
  - ORAL PAIN [None]
  - OEDEMA MOUTH [None]
  - GLOSSODYNIA [None]
